FAERS Safety Report 20350346 (Version 4)
Quarter: 2022Q3

REPORT INFORMATION
  Report Type: Report from Study
  Country: US (occurrence: US)
  Receive Date: 20220119
  Receipt Date: 20220805
  Transmission Date: 20221027
  Serious: No
  Sender: FDA-Public Use
  Company Number: US-JNJFOC-20220127464

PATIENT
  Age: 25 Year
  Sex: Female
  Weight: 52.664 kg

DRUGS (1)
  1. INFLIXIMAB [Suspect]
     Active Substance: INFLIXIMAB
     Indication: Inflammatory bowel disease
     Route: 041
     Dates: start: 20090113

REACTIONS (1)
  - Prolactin-producing pituitary tumour [Recovered/Resolved with Sequelae]

NARRATIVE: CASE EVENT DATE: 20210601
